FAERS Safety Report 23533035 (Version 1)
Quarter: 2024Q1

REPORT INFORMATION
  Report Type: Report from Study
  Country: CA (occurrence: CA)
  Receive Date: 20240216
  Receipt Date: 20240216
  Transmission Date: 20240410
  Serious: Yes (Hospitalization, Other)
  Sender: FDA-Public Use
  Company Number: CA-BIOGEN-2024BI01250484

PATIENT
  Age: 43 Year
  Sex: Male

DRUGS (2)
  1. DALFAMPRIDINE [Suspect]
     Active Substance: DALFAMPRIDINE
     Indication: Multiple sclerosis
     Route: 050
     Dates: start: 20210902
  2. OCREVUS [Concomitant]
     Active Substance: OCRELIZUMAB
     Indication: Product used for unknown indication
     Route: 050

REACTIONS (8)
  - Fall [Recovered/Resolved]
  - Paralysis [Unknown]
  - Thoracic vertebral fracture [Unknown]
  - Balance disorder [Unknown]
  - Tooth disorder [Unknown]
  - Multiple sclerosis [Unknown]
  - SARS-CoV-2 test positive [Unknown]
  - Post-acute COVID-19 syndrome [Not Recovered/Not Resolved]

NARRATIVE: CASE EVENT DATE: 20231101
